FAERS Safety Report 8407381-2 (Version None)
Quarter: 2012Q2

REPORT INFORMATION
  Report Type: 
  Country: None (occurrence: None)
  Receive Date: 20120604
  Receipt Date: 20120521
  Transmission Date: 20120825
  Serious: Yes (Other)
  Sender: FDA-Public Use
  Company Number: JP-UCBSA-021198

PATIENT
  Age: 24 Year
  Sex: Female
  Weight: 46 kg

DRUGS (3)
  1. KEPPRA [Suspect]
     Route: 048
     Dates: start: 20110806
  2. KEPPRA [Suspect]
     Indication: EPILEPSY
     Route: 048
     Dates: start: 20101001
  3. TEGRETOL [Concomitant]
     Route: 048

REACTIONS (4)
  - BREAST FEEDING [None]
  - SOMNOLENCE [None]
  - PREGNANCY [None]
  - CAESAREAN SECTION [None]
